FAERS Safety Report 14247589 (Version 1)
Quarter: 2017Q4

REPORT INFORMATION
  Report Type: Spontaneous
  Country: SI (occurrence: SI)
  Receive Date: 20171204
  Receipt Date: 20171204
  Transmission Date: 20180321
  Serious: Yes (Hospitalization, Other)
  Sender: FDA-Public Use
  Company Number: SI-JNJFOC-20171137844

PATIENT
  Age: 80 Year
  Sex: Female

DRUGS (9)
  1. XARELTO [Suspect]
     Active Substance: RIVAROXABAN
     Indication: CARDIAC FAILURE
     Route: 048
     Dates: start: 20150429
  2. XARELTO [Suspect]
     Active Substance: RIVAROXABAN
     Indication: MYOCARDIAL ISCHAEMIA
     Route: 048
     Dates: start: 20150429
  3. CANDESARTAN. [Concomitant]
     Active Substance: CANDESARTAN
     Route: 065
  4. GLYCOPYRROLATE. [Concomitant]
     Active Substance: GLYCOPYRROLATE
     Dosage: 1 PUFF OM
     Route: 065
  5. BROMAZEPAM [Concomitant]
     Active Substance: BROMAZEPAM
     Route: 065
  6. CANDESARTAN CILEXETIL AND HYDROCHLOROTHIAZIDE [Concomitant]
     Active Substance: CANDESARTAN CILEXETIL\HYDROCHLOROTHIAZIDE
     Route: 065
  7. BISOPROLOL [Concomitant]
     Active Substance: BISOPROLOL
     Route: 065
  8. ASPIRIN PROTECT [Suspect]
     Active Substance: ASPIRIN
     Indication: PLATELET AGGREGATION INHIBITION
     Route: 065
     Dates: start: 201701
  9. XARELTO [Suspect]
     Active Substance: RIVAROXABAN
     Indication: ATRIAL FIBRILLATION
     Route: 048
     Dates: start: 20150429

REACTIONS (7)
  - Carotid artery occlusion [Unknown]
  - Disturbance in attention [Recovered/Resolved]
  - Lower respiratory tract infection [Recovered/Resolved]
  - Ischaemic stroke [Recovered/Resolved]
  - Sensory disturbance [Recovered/Resolved]
  - Malaise [Unknown]
  - Musculoskeletal disorder [Recovered/Resolved]

NARRATIVE: CASE EVENT DATE: 201701
